FAERS Safety Report 6768670-0 (Version None)
Quarter: 2010Q2

REPORT INFORMATION
  Report Type: 
  Country: None (occurrence: None)
  Receive Date: 20100614
  Receipt Date: 20100604
  Transmission Date: 20101027
  Serious: Yes (Hospitalization)
  Sender: FDA-Public Use
  Company Number: US-SANOFI-AVENTIS-2010SA032536

PATIENT
  Age: 86 Year
  Sex: Female

DRUGS (12)
  1. PLAVIX [Suspect]
     Indication: TRANSIENT ISCHAEMIC ATTACK
     Route: 048
     Dates: start: 20050101, end: 20090901
  2. PLAVIX [Suspect]
     Route: 048
     Dates: start: 20050101, end: 20090901
  3. PLAVIX [Suspect]
     Route: 048
     Dates: start: 20100112
  4. PLAVIX [Suspect]
     Route: 048
     Dates: start: 20100112
  5. ATORVASTATIN [Concomitant]
  6. ZETIA [Concomitant]
  7. METOPROLOL TARTRATE [Concomitant]
  8. NORVASC [Concomitant]
  9. LUCENTIS [Concomitant]
     Indication: MACULAR DEGENERATION
  10. XALATAN [Concomitant]
     Indication: GLAUCOMA
  11. VITAMIN D [Concomitant]
  12. KLONOPIN [Concomitant]

REACTIONS (4)
  - CHEST PAIN [None]
  - MEMORY IMPAIRMENT [None]
  - OFF LABEL USE [None]
  - PULMONARY EMBOLISM [None]
